FAERS Safety Report 14700488 (Version 6)
Quarter: 2021Q3

REPORT INFORMATION
  Report Type: Spontaneous
  Country: US (occurrence: US)
  Receive Date: 20180330
  Receipt Date: 20210728
  Transmission Date: 20211014
  Serious: Yes (Other)
  Sender: FDA-Public Use
  Company Number: US-ASTRAZENECA-2018SE36834

PATIENT
  Age: 22666 Day
  Sex: Female

DRUGS (62)
  1. NEXIUM [Suspect]
     Active Substance: ESOMEPRAZOLE MAGNESIUM
     Indication: GASTROOESOPHAGEAL REFLUX DISEASE
     Route: 048
     Dates: start: 2002
  2. OMEPRAZOLE. [Suspect]
     Active Substance: OMEPRAZOLE
     Indication: GASTROOESOPHAGEAL REFLUX DISEASE
     Route: 065
     Dates: start: 2013
  3. LEVOXYL [Concomitant]
     Active Substance: LEVOTHYROXINE SODIUM
  4. VITAMIN D [Concomitant]
     Active Substance: VITAMIN D NOS
  5. AMITRIPTYLINE [Concomitant]
     Active Substance: AMITRIPTYLINE
  6. LISINOPRIL. [Concomitant]
     Active Substance: LISINOPRIL
  7. ONDANSETRON [Concomitant]
     Active Substance: ONDANSETRON
  8. PEPCID [Concomitant]
     Active Substance: FAMOTIDINE
     Indication: ULCER
  9. ZOFRAN [Concomitant]
     Active Substance: ONDANSETRON HYDROCHLORIDE
     Indication: NAUSEA
  10. FISH OIL [Concomitant]
     Active Substance: FISH OIL
     Indication: BLOOD CHOLESTEROL
  11. OMEPRAZOLE. [Suspect]
     Active Substance: OMEPRAZOLE
     Indication: GASTROOESOPHAGEAL REFLUX DISEASE
     Route: 065
     Dates: start: 2012
  12. LANSOPRAZOLE. [Suspect]
     Active Substance: LANSOPRAZOLE
     Indication: GASTROOESOPHAGEAL REFLUX DISEASE
     Route: 065
     Dates: start: 2013
  13. ADALAT CC [Concomitant]
     Active Substance: NIFEDIPINE
  14. CELEBREX [Concomitant]
     Active Substance: CELECOXIB
  15. HYDROCODONE BITARTRATE AND ACETAMINOPHEN [Concomitant]
     Active Substance: ACETAMINOPHEN\HYDROCODONE BITARTRATE
  16. MEPERIDINE [Concomitant]
     Active Substance: MEPERIDINE
  17. PROAIR HFA [Concomitant]
     Active Substance: ALBUTEROL SULFATE
  18. MELOXICAM. [Concomitant]
     Active Substance: MELOXICAM
  19. LASIX [Concomitant]
     Active Substance: FUROSEMIDE
  20. PAROXETINE. [Concomitant]
     Active Substance: PAROXETINE
  21. TRAMADOL. [Concomitant]
     Active Substance: TRAMADOL
  22. METOPROLOL TARTRATE. [Concomitant]
     Active Substance: METOPROLOL TARTRATE
  23. ALENDRONATE SODIUM. [Concomitant]
     Active Substance: ALENDRONATE SODIUM
  24. NIFEDIPINE. [Concomitant]
     Active Substance: NIFEDIPINE
  25. NEXIUM [Suspect]
     Active Substance: ESOMEPRAZOLE MAGNESIUM
     Indication: GASTROOESOPHAGEAL REFLUX DISEASE
     Route: 048
     Dates: start: 1986, end: 2011
  26. LANSOPRAZOLE. [Suspect]
     Active Substance: LANSOPRAZOLE
     Indication: GASTROOESOPHAGEAL REFLUX DISEASE
     Route: 065
     Dates: start: 20130422
  27. CLINDAMYCIN. [Concomitant]
     Active Substance: CLINDAMYCIN
  28. ACTONEL [Concomitant]
     Active Substance: RISEDRONATE SODIUM
  29. LEVOFLOXACIN. [Concomitant]
     Active Substance: LEVOFLOXACIN
  30. LOVENOX [Concomitant]
     Active Substance: ENOXAPARIN SODIUM
     Indication: THYROID DISORDER
  31. ROPINIROLE. [Concomitant]
     Active Substance: ROPINIROLE
     Indication: RESTLESS LEGS SYNDROME
  32. NEXIUM [Suspect]
     Active Substance: ESOMEPRAZOLE MAGNESIUM
     Indication: GASTROOESOPHAGEAL REFLUX DISEASE
     Route: 048
     Dates: start: 20100819
  33. LANSOPRAZOLE. [Suspect]
     Active Substance: LANSOPRAZOLE
     Indication: GASTROOESOPHAGEAL REFLUX DISEASE
     Route: 065
     Dates: start: 2012
  34. LINACLOTIDE [Concomitant]
     Active Substance: LINACLOTIDE
  35. ZETIA [Concomitant]
     Active Substance: EZETIMIBE
  36. BENADRYL [Concomitant]
     Active Substance: DIPHENHYDRAMINE HYDROCHLORIDE
  37. BACLOFEN. [Concomitant]
     Active Substance: BACLOFEN
  38. PREDNISONE. [Concomitant]
     Active Substance: PREDNISONE
  39. LABETALOL [Concomitant]
     Active Substance: LABETALOL\LABETALOL HYDROCHLORIDE
  40. SYMBICORT [Concomitant]
     Active Substance: BUDESONIDE\FORMOTEROL FUMARATE DIHYDRATE
     Indication: CHRONIC OBSTRUCTIVE PULMONARY DISEASE
  41. SPIRIVA [Concomitant]
     Active Substance: TIOTROPIUM BROMIDE MONOHYDRATE
  42. NORMODYNE [Concomitant]
     Active Substance: LABETALOL HYDROCHLORIDE
  43. ASPIRIN. [Concomitant]
     Active Substance: ASPIRIN
  44. AVELOX [Concomitant]
     Active Substance: MOXIFLOXACIN HYDROCHLORIDE
  45. ACETAMINOPHEN. [Concomitant]
     Active Substance: ACETAMINOPHEN
  46. AMLODIPINE BESYLATE. [Concomitant]
     Active Substance: AMLODIPINE BESYLATE
  47. WELLBUTRIN [Concomitant]
     Active Substance: BUPROPION HYDROCHLORIDE
     Indication: DEPRESSION
  48. WARFARIN [Concomitant]
     Active Substance: WARFARIN
     Indication: ATRIAL FIBRILLATION
  49. NEPHRO VITE RX [Concomitant]
     Active Substance: ASCORBIC ACID\BIOTIN\CALCIUM PANTOTHENATE\CYANOCOBALAMIN\FOLIC ACID\NIACINAMIDE\PYRIDOXINE HYDROCHLORIDE\RIBOFLAVIN\THIAMINE MONONITRATE
     Indication: RENAL DISORDER
  50. FUROSEMIDE. [Concomitant]
     Active Substance: FUROSEMIDE
     Indication: FLUID RETENTION
  51. NEXIUM [Suspect]
     Active Substance: ESOMEPRAZOLE MAGNESIUM
     Indication: GASTROOESOPHAGEAL REFLUX DISEASE
     Route: 048
     Dates: start: 20090416
  52. COUMADIN [Concomitant]
     Active Substance: WARFARIN SODIUM
  53. LIPITOR [Concomitant]
     Active Substance: ATORVASTATIN CALCIUM
  54. COMBIVENT [Concomitant]
     Active Substance: ALBUTEROL SULFATE\IPRATROPIUM BROMIDE
  55. GABAPENTIN. [Concomitant]
     Active Substance: GABAPENTIN
  56. TOPIRAMATE. [Concomitant]
     Active Substance: TOPIRAMATE
  57. MONTELUKAST [Concomitant]
     Active Substance: MONTELUKAST SODIUM
  58. CARDIZEM [Concomitant]
     Active Substance: DILTIAZEM HYDROCHLORIDE
     Indication: ATRIAL FIBRILLATION
  59. PEPCID [Concomitant]
     Active Substance: FAMOTIDINE
     Indication: GASTROOESOPHAGEAL REFLUX DISEASE
  60. TRICOR [Concomitant]
     Active Substance: FENOFIBRATE
  61. OXCARBAZEPINE. [Concomitant]
     Active Substance: OXCARBAZEPINE
  62. AMITIZA [Concomitant]
     Active Substance: LUBIPROSTONE
     Indication: CONSTIPATION

REACTIONS (7)
  - Chronic kidney disease [Unknown]
  - Renal disorder [Unknown]
  - End stage renal disease [Not Recovered/Not Resolved]
  - Renal failure [Unknown]
  - Hyperparathyroidism secondary [Unknown]
  - Acute kidney injury [Unknown]
  - Nephrogenic anaemia [Unknown]

NARRATIVE: CASE EVENT DATE: 20100722
